FAERS Safety Report 21332424 (Version 1)
Quarter: 2022Q3

REPORT INFORMATION
  Report Type: Spontaneous
  Country: US (occurrence: US)
  Receive Date: 20220914
  Receipt Date: 20220914
  Transmission Date: 20221026
  Serious: No
  Sender: FDA-Public Use
  Company Number: US-BRISTOL-MYERS SQUIBB COMPANY-2022-105733

PATIENT
  Age: 78 Year
  Sex: Female

DRUGS (1)
  1. ORENCIA [Suspect]
     Active Substance: ABATACEPT
     Indication: Chronic graft versus host disease
     Dosage: ONGOING
     Route: 058
     Dates: start: 202202

REACTIONS (3)
  - Peripheral coldness [Unknown]
  - Intentional product use issue [Unknown]
  - Off label use [Unknown]
